FAERS Safety Report 11903229 (Version 1)
Quarter: 2016Q1

REPORT INFORMATION
  Report Type: Report from Study
  Country: JP (occurrence: JP)
  Receive Date: 20160110
  Receipt Date: 20160110
  Transmission Date: 20160526
  Serious: Yes (Other)
  Sender: FDA-Public Use
  Company Number: PHHY2010JP82431

PATIENT
  Age: 80 Year
  Sex: Male
  Weight: 40 kg

DRUGS (19)
  1. ICL670A [Suspect]
     Active Substance: DEFERASIROX
     Dosage: 750 MG, QD
     Route: 048
     Dates: start: 20101209, end: 20110117
  2. ICL670A [Suspect]
     Active Substance: DEFERASIROX
     Dosage: 1000 MG, QD
     Route: 048
     Dates: start: 20110118, end: 20120226
  3. PANALDINE [Concomitant]
     Active Substance: TICLOPIDINE HYDROCHLORIDE
     Indication: INTESTINAL OBSTRUCTION
     Dosage: 200 MG, UNK
     Route: 048
     Dates: start: 20110215, end: 20130516
  4. FOIPAN [Concomitant]
     Active Substance: CAMOSTAT MESYLATE
     Indication: HEPATITIS ACUTE
     Dosage: 300 MG, UNK
     Route: 048
     Dates: start: 20110215, end: 20110507
  5. ICL670A [Suspect]
     Active Substance: DEFERASIROX
     Dosage: 625 MG, QD
     Route: 048
     Dates: start: 20101029, end: 20101208
  6. ICL670A [Suspect]
     Active Substance: DEFERASIROX
     Dosage: 625 MG, QD
     Route: 048
     Dates: start: 20101124
  7. ICL670A [Suspect]
     Active Substance: DEFERASIROX
     Dosage: 1000 MG, QD
     Route: 048
     Dates: start: 20110118, end: 20110507
  8. FOIPAN [Concomitant]
     Active Substance: CAMOSTAT MESYLATE
     Dosage: 300 MG, UNK
     Route: 048
     Dates: end: 20130516
  9. GASTER [Concomitant]
     Active Substance: FAMOTIDINE
     Dosage: 40 MG, UNK
     Route: 048
     Dates: end: 20130516
  10. ICL670A [Suspect]
     Active Substance: DEFERASIROX
     Indication: MYELODYSPLASTIC SYNDROME
     Dosage: 500 MG, QD
     Route: 048
     Dates: start: 20100517, end: 20101028
  11. ICL670A [Suspect]
     Active Substance: DEFERASIROX
     Dosage: 750 MG, QD
     Route: 048
     Dates: start: 20120227, end: 20130516
  12. CEREKINON [Concomitant]
     Active Substance: TRIMEBUTINE
     Indication: GASTRITIS
     Dosage: 300 MG, UNK
     Route: 048
     Dates: start: 20110215, end: 20110314
  13. ICL670A [Suspect]
     Active Substance: DEFERASIROX
     Dosage: 750 MG, QD
     Route: 048
     Dates: start: 20120227, end: 20140305
  14. NEORAL [Suspect]
     Active Substance: CYCLOSPORINE
     Dosage: 100 MG, QD
     Route: 048
     Dates: start: 20130517, end: 20140305
  15. GASTER [Concomitant]
     Active Substance: FAMOTIDINE
     Indication: GASTRITIS
     Dosage: 40 MG, UNK
     Route: 048
     Dates: start: 20110215, end: 20110507
  16. NEORAL [Suspect]
     Active Substance: CYCLOSPORINE
     Indication: MYELODYSPLASTIC SYNDROME
     Dosage: 100 MG, QD
     Route: 048
     Dates: start: 20100517, end: 20101119
  17. NEORAL [Suspect]
     Active Substance: CYCLOSPORINE
     Dosage: 100 MG, UNK
     Route: 048
     Dates: start: 20101124, end: 20130516
  18. NEORAL [Suspect]
     Active Substance: CYCLOSPORINE
     Dosage: 100 MG, QD
     Route: 048
     Dates: start: 20101124, end: 20140305
  19. LOXONIN [Concomitant]
     Active Substance: LOXOPROFEN SODIUM
     Indication: PHARYNGITIS
     Dosage: 180 MG, UNK
     Route: 048
     Dates: start: 20101228, end: 20110103

REACTIONS (8)
  - Monocyte count increased [Not Recovered/Not Resolved]
  - Blood creatinine increased [Recovered/Resolved]
  - Gamma-glutamyltransferase increased [Recovered/Resolved]
  - Alanine aminotransferase increased [Recovered/Resolved]
  - Myelodysplastic syndrome [Not Recovered/Not Resolved]
  - Aspartate aminotransferase increased [Recovered/Resolved]
  - Condition aggravated [Not Recovered/Not Resolved]
  - Blood urea increased [Recovered/Resolved]

NARRATIVE: CASE EVENT DATE: 20100714
